FAERS Safety Report 12401476 (Version 1)
Quarter: 2016Q2

REPORT INFORMATION
  Report Type: Spontaneous
  Country: DE (occurrence: DE)
  Receive Date: 20160525
  Receipt Date: 20160525
  Transmission Date: 20160815
  Serious: Yes (Death, Life-Threatening, Other)
  Sender: FDA-Public Use
  Company Number: DE-ACTAVIS-2016-10680

PATIENT
  Age: 53 Year
  Sex: Male

DRUGS (9)
  1. ACETYLSALICYLIC ACID (UNKNOWN) [Interacting]
     Active Substance: ASPIRIN
     Indication: ANTIPLATELET THERAPY
     Dosage: 100 MG, DAILY
     Route: 065
  2. ACETYLSALICYLIC ACID (UNKNOWN) [Interacting]
     Active Substance: ASPIRIN
     Dosage: 500 MG, SINGLE, LOADING DOSE
     Route: 065
  3. TICAGRELOR [Concomitant]
     Active Substance: TICAGRELOR
     Dosage: 180 MG, SINGLE
     Route: 048
  4. EPTIFIBATIDE. [Concomitant]
     Active Substance: EPTIFIBATIDE
     Indication: ANTIPLATELET THERAPY
     Dosage: BODY WEIGHT ADAPTED BOLUS
     Route: 040
  5. DEXAMETHASONE. [Concomitant]
     Active Substance: DEXAMETHASONE
     Indication: OEDEMA
     Dosage: 40 MG, UNKNOWN
     Route: 042
  6. HEPARIN [Concomitant]
     Active Substance: HEPARIN SODIUM
     Indication: ANTICOAGULANT THERAPY
     Dosage: 3000 IU, TOTAL
     Route: 042
  7. DEXAMETHASONE. [Concomitant]
     Active Substance: DEXAMETHASONE
     Indication: STEROID THERAPY
     Dosage: 4 MG, TID
     Route: 065
  8. IBUPROFEN (UNKNOWN) [Suspect]
     Active Substance: IBUPROFEN
     Indication: PRODUCT USED FOR UNKNOWN INDICATION
     Dosage: 400 MG, QHS
     Route: 048
  9. TICAGRELOR [Concomitant]
     Active Substance: TICAGRELOR
     Indication: ANTIPLATELET THERAPY
     Dosage: 90 MG, BID
     Route: 065

REACTIONS (8)
  - Brain oedema [Fatal]
  - Cardio-respiratory arrest [Fatal]
  - Fall [Unknown]
  - Inappropriate schedule of drug administration [Unknown]
  - Drug interaction [Fatal]
  - Brain herniation [Fatal]
  - Arterial thrombosis [Fatal]
  - Coma [Unknown]
